FAERS Safety Report 7357719-2 (Version None)
Quarter: 2011Q1

REPORT INFORMATION
  Report Type: 
  Country: None (occurrence: None)
  Receive Date: 20110317
  Receipt Date: 20110308
  Transmission Date: 20110831
  Serious: Yes (Hospitalization)
  Sender: FDA-Public Use
  Company Number: JP-JNJFOC-20110300457

PATIENT
  Age: 69 Year
  Sex: Male

DRUGS (6)
  1. MICONAZOLE [Suspect]
     Route: 065
  2. ITRIZOLE [Suspect]
     Indication: PRODUCT USED FOR UNKNOWN INDICATION
     Route: 048
  3. ITRIZOLE [Suspect]
     Indication: SYSTEMIC MYCOSIS
     Route: 041
  4. MICONAZOLE [Suspect]
     Indication: PRODUCT USED FOR UNKNOWN INDICATION
     Route: 065
  5. CARBENIN [Concomitant]
     Route: 065
  6. ITRIZOLE [Suspect]
     Route: 041

REACTIONS (1)
  - HEPATIC FUNCTION ABNORMAL [None]
